FAERS Safety Report 5822545-X (Version None)
Quarter: 2008Q3

REPORT INFORMATION
  Report Type: 
  Country: None (occurrence: None)
  Receive Date: 20080725
  Receipt Date: 20080115
  Transmission Date: 20090109
  Serious: No
  Sender: FDA-Public Use
  Company Number: US-AMGEN-KDL261472

PATIENT
  Sex: Female

DRUGS (1)
  1. PROCRIT [Suspect]
     Indication: PREOPERATIVE CARE
     Route: 058
     Dates: start: 20070701

REACTIONS (3)
  - MACROCYTOSIS [None]
  - TACHYPHYLAXIS [None]
  - THERAPEUTIC RESPONSE DECREASED [None]
